FAERS Safety Report 7416139-2 (Version None)
Quarter: 2011Q2

REPORT INFORMATION
  Report Type: 
  Country: None (occurrence: None)
  Receive Date: 20110414
  Receipt Date: 20101104
  Transmission Date: 20111010
  Serious: Yes (Hospitalization, Other)
  Sender: FDA-Public Use
  Company Number: US-BAYER-201022371NA

PATIENT
  Age: 42 Year
  Sex: Female
  Weight: 54 kg

DRUGS (4)
  1. YASMIN [Suspect]
     Indication: FIBROCYSTIC BREAST DISEASE
  2. YASMIN [Suspect]
     Indication: ACNE
     Dosage: 1 DF (DAILY DOSE), QD, ORAL
     Route: 048
     Dates: start: 20070318, end: 20070501
  3. BUPROBAN [Concomitant]
     Indication: EX-TOBACCO USER
     Dosage: 150 MG, UNK
     Route: 048
     Dates: start: 20070914
  4. ADVIL LIQUI-GELS [Concomitant]
     Indication: PAIN

REACTIONS (4)
  - PULMONARY EMBOLISM [None]
  - PULMONARY INFARCTION [None]
  - DYSPNOEA [None]
  - CHEST PAIN [None]
